FAERS Safety Report 6101080-8 (Version None)
Quarter: 2009Q1

REPORT INFORMATION
  Report Type: 
  Country: None (occurrence: None)
  Receive Date: 20090227
  Receipt Date: 20090218
  Transmission Date: 20090719
  Serious: Yes (Hospitalization)
  Sender: FDA-Public Use
  Company Number: 041324

PATIENT
  Age: 71 Year
  Sex: Female

DRUGS (15)
  1. AMIODARONE HCL [Suspect]
     Indication: ARRHYTHMIA
     Dosage: 200 MG, TID FOR LAST 4 MONTHS ;  200MG/D
  2. ETHAMBUTOL HCL [Concomitant]
  3. AZITHROMYCIN [Concomitant]
  4. LINEZOLID [Concomitant]
  5. CALCIUM ACETATE (CALCIUM ACETATE) [Concomitant]
  6. FUROSEMIDE [Concomitant]
  7. IRON (IRON) [Concomitant]
  8. HYDRALAZINE HCL [Concomitant]
  9. POTASSIUM (POTASSIUM) [Concomitant]
  10. PREDNISONE TAB [Concomitant]
  11. PANTOPRAZOLE SODIUM [Concomitant]
  12. SODIUM BICARBONATE IN PLASTIC CONTAINER [Concomitant]
  13. INSULIN GLARGINE (INSULIN GLARGINE) [Concomitant]
  14. CLONIDINE [Concomitant]
  15. NIFEDIPINE [Concomitant]

REACTIONS (11)
  - BLOOD PRESSURE SYSTOLIC INCREASED [None]
  - FABRY'S DISEASE [None]
  - HEPATOTOXICITY [None]
  - INCORRECT DOSE ADMINISTERED [None]
  - INTERSTITIAL LUNG DISEASE [None]
  - KERATOPATHY [None]
  - KIDNEY FIBROSIS [None]
  - LIPIDOSIS [None]
  - PNEUMONIA STAPHYLOCOCCAL [None]
  - RENAL ARTERIOSCLEROSIS [None]
  - RENAL IMPAIRMENT [None]
